FAERS Safety Report 6381519-3 (Version None)
Quarter: 2009Q3

REPORT INFORMATION
  Report Type: 
  Country: None (occurrence: None)
  Receive Date: 20090925
  Receipt Date: 20090910
  Transmission Date: 20100115
  Serious: Yes (Hospitalization)
  Sender: FDA-Public Use
  Company Number: B0592538A

PATIENT
  Age: 23 Year
  Sex: Female

DRUGS (5)
  1. ZIDOVUDINE [Suspect]
     Indication: HIV INFECTION
     Dosage: 600 MG/001D/
     Dates: start: 20040101
  2. LAMIVUDINE [Suspect]
     Indication: HIV INFECTION
     Dosage: 300 MG/ 001D
     Dates: start: 20040101
  3. EFAVIRENZ [Suspect]
     Indication: HIV INFECTION
     Dosage: 600 MG/001D
     Dates: start: 20040101
  4. ETONOGESTREL (FORMULATION UNKNOWN) (ETONOGESTREL) [Suspect]
     Indication: CONTRACEPTION
     Dosage: D
     Dates: start: 20030201
  5. EFAVIRENZ [Concomitant]

REACTIONS (6)
  - DRUG EXPOSURE DURING PREGNANCY [None]
  - HAEMOGLOBIN DECREASED [None]
  - NO THERAPEUTIC RESPONSE [None]
  - PREGNANCY WITH CONTRACEPTIVE DEVICE [None]
  - RUPTURED ECTOPIC PREGNANCY [None]
  - SELF-MEDICATION [None]
